FAERS Safety Report 16634992 (Version 1)
Quarter: 2019Q3

REPORT INFORMATION
  Report Type: Spontaneous
  Country: US (occurrence: US)
  Receive Date: 20190726
  Receipt Date: 20190726
  Transmission Date: 20191004
  Serious: Yes (Hospitalization)
  Sender: FDA-Public Use
  Company Number: US-EMMAUS MEDICAL, INC.-EMM201904-000136

PATIENT
  Sex: Female

DRUGS (6)
  1. HYDROXYUREA. [Concomitant]
     Active Substance: HYDROXYUREA
     Indication: SICKLE CELL DISEASE
  2. HYDROMORPHONE [Concomitant]
     Active Substance: HYDROMORPHONE
     Indication: PAIN
  3. INSULIN [Concomitant]
     Active Substance: INSULIN NOS
     Indication: DIABETES MELLITUS
  4. FOLIC ACID. [Concomitant]
     Active Substance: FOLIC ACID
  5. ENDARI [Suspect]
     Active Substance: GLUTAMINE
     Indication: SICKLE CELL DISEASE
     Route: 048
     Dates: start: 20180724
  6. ENDARI [Suspect]
     Active Substance: GLUTAMINE
     Route: 048
     Dates: start: 20190412

REACTIONS (5)
  - Decreased appetite [Recovered/Resolved]
  - Adverse event [Unknown]
  - Sickle cell disease [Unknown]
  - Blood glucose decreased [Unknown]
  - Drug ineffective [Unknown]
